FAERS Safety Report 7661974-9 (Version None)
Quarter: 2011Q3

REPORT INFORMATION
  Report Type: 
  Country: None (occurrence: None)
  Receive Date: 20110805
  Receipt Date: 20101206
  Transmission Date: 20111222
  Serious: No
  Sender: FDA-Public Use
  Company Number: US-ABBOTT-10P-163-0689775-00

PATIENT
  Sex: Male
  Weight: 136.2 kg

DRUGS (5)
  1. NIASPAN [Suspect]
     Indication: HIGH DENSITY LIPOPROTEIN DECREASED
     Dosage: AT BEDTIME
  2. HYLOTOPIC PLUS SPRAY [Concomitant]
     Indication: PRODUCT USED FOR UNKNOWN INDICATION
  3. ROMEVEN [Concomitant]
     Indication: ECZEMA
     Route: 061
  4. VIT C [Concomitant]
     Indication: PRODUCT USED FOR UNKNOWN INDICATION
  5. PROTOPIC [Concomitant]
     Indication: PRODUCT USED FOR UNKNOWN INDICATION
     Route: 061

REACTIONS (1)
  - ECZEMA [None]
